FAERS Safety Report 6119376-2 (Version None)
Quarter: 2009Q1

REPORT INFORMATION
  Report Type: 
  Country: None (occurrence: None)
  Receive Date: 20090316
  Receipt Date: 20090305
  Transmission Date: 20090719
  Serious: Yes (Other)
  Sender: FDA-Public Use
  Company Number: PHHY2009JP03360

PATIENT
  Age: 41 Year
  Sex: Female

DRUGS (5)
  1. VOLTAREN [Suspect]
     Indication: TOOTHACHE
     Dosage: UNK
     Route: 048
     Dates: start: 20090124, end: 20090128
  2. CALONAL [Concomitant]
     Indication: INFLUENZA
  3. CEFZON [Concomitant]
     Indication: INFLUENZA
     Route: 048
  4. RELENZA [Concomitant]
     Indication: INFLUENZA
  5. ANTITUSSIVES [Concomitant]
     Indication: INFLUENZA

REACTIONS (2)
  - CHOLELITHIASIS [None]
  - FAECES PALE [None]
